FAERS Safety Report 12937086 (Version 1)
Quarter: 2016Q4

REPORT INFORMATION
  Report Type: Spontaneous
  Country: AU (occurrence: AU)
  Receive Date: 20161114
  Receipt Date: 20161114
  Transmission Date: 20170207
  Serious: Yes (Other)
  Sender: FDA-Public Use
  Company Number: PHHY2016AU153377

PATIENT
  Sex: Female

DRUGS (1)
  1. AMLODIPINE [Suspect]
     Active Substance: AMLODIPINE BESYLATE
     Indication: BLOOD PRESSURE MANAGEMENT
     Dosage: 10 MG, UNK
     Route: 065

REACTIONS (8)
  - Choking [Recovering/Resolving]
  - Cough [Recovering/Resolving]
  - Product quality issue [Unknown]
  - Product physical issue [Unknown]
  - Burning sensation [Recovering/Resolving]
  - Accidental exposure to product [Unknown]
  - Product taste abnormal [Unknown]
  - Oropharyngeal pain [Recovering/Resolving]
